FAERS Safety Report 10486024 (Version 2)
Quarter: 2014Q4

REPORT INFORMATION
  Report Type: Spontaneous
  Country: US (occurrence: None)
  Receive Date: 20140929
  Receipt Date: 20141001
  Transmission Date: 20150528
  Serious: Yes (Other)
  Sender: FDA-Public Use
  Company Number: ADR-2014-01746

PATIENT
  Sex: Male

DRUGS (4)
  1. BACLOFEN INTRATHECAL [Suspect]
     Active Substance: BACLOFEN
     Indication: HEAD INJURY
  2. BACLOFEN INTRATHECAL [Suspect]
     Active Substance: BACLOFEN
     Indication: BRAIN INJURY
  3. MOBIC [Suspect]
     Active Substance: MELOXICAM
  4. SALINE (PFNS, PBS) 1 UNIT/ML [Suspect]
     Active Substance: SODIUM CHLORIDE

REACTIONS (3)
  - Cardiac disorder [None]
  - Electrocardiogram abnormal [None]
  - Device failure [None]
